FAERS Safety Report 16525267 (Version 4)
Quarter: 2019Q4

REPORT INFORMATION
  Report Type: Spontaneous
  Country: None (occurrence: US)
  Receive Date: 20190702
  Receipt Date: 20191210
  Transmission Date: 20200122
  Serious: No
  Sender: FDA-Public Use
  Company Number: US-VIFOR (INTERNATIONAL) INC.-VIT-2019-05852

PATIENT
  Sex: Male
  Weight: 65.6 kg

DRUGS (13)
  1. VELTASSA [Suspect]
     Active Substance: PATIROMER
     Route: 048
     Dates: start: 201907, end: 20191111
  2. TYLENOL [Concomitant]
     Active Substance: ACETAMINOPHEN
     Indication: PAIN
     Dates: start: 201901
  3. LOSARTAN POTASSIUM. [Concomitant]
     Active Substance: LOSARTAN POTASSIUM
     Dates: end: 20191111
  4. VELTASSA [Suspect]
     Active Substance: PATIROMER
     Indication: HYPERKALAEMIA
     Dates: start: 201906, end: 2019
  5. VELTASSA [Suspect]
     Active Substance: PATIROMER
  6. AMLODIPINE [Concomitant]
     Active Substance: AMLODIPINE BESYLATE
     Indication: HYPERTENSION
  7. LISINOPRIL. [Suspect]
     Active Substance: LISINOPRIL
     Dates: start: 201907
  8. PREDNISONE. [Concomitant]
     Active Substance: PREDNISONE
     Indication: RHEUMATOID ARTHRITIS
  9. PREDNISONE. [Concomitant]
     Active Substance: PREDNISONE
     Indication: POLYMYALGIA RHEUMATICA
  10. CHLORZOXAZONE. [Concomitant]
     Active Substance: CHLORZOXAZONE
     Indication: MUSCLE RELAXANT THERAPY
  11. VOLTAREN [Concomitant]
     Active Substance: DICLOFENAC SODIUM
  12. LISINOPRIL. [Suspect]
     Active Substance: LISINOPRIL
     Dates: end: 2019
  13. TYLENOL [Concomitant]
     Active Substance: ACETAMINOPHEN
     Indication: RENAL DISORDER

REACTIONS (11)
  - Dysgeusia [Recovered/Resolved]
  - Dry mouth [Unknown]
  - Muscle spasms [Recovered/Resolved]
  - Breath odour [Unknown]
  - Cough [Unknown]
  - Suspected product quality issue [Unknown]
  - Off label use [Unknown]
  - Constipation [Not Recovered/Not Resolved]
  - Abdominal discomfort [Unknown]
  - Tongue coated [Unknown]
  - Tooth deposit [Unknown]

NARRATIVE: CASE EVENT DATE: 2019
